FAERS Safety Report 10799641 (Version 1)
Quarter: 2015Q1

REPORT INFORMATION
  Report Type: Report from Study
  Country: US (occurrence: US)
  Receive Date: 20150216
  Receipt Date: 20150216
  Transmission Date: 20150721
  Serious: No
  Sender: FDA-Public Use
  Company Number: US-ABBVIE-14K-163-1243121-00

PATIENT
  Age: 59 Year
  Sex: Female

DRUGS (12)
  1. ARMOUR THYROID [Concomitant]
     Active Substance: THYROID, PORCINE\THYROID, UNSPECIFIED
     Indication: HYPOTHYROIDISM
  2. FLAXSEED [Concomitant]
     Active Substance: FLAX SEED
     Indication: PRODUCT USED FOR UNKNOWN INDICATION
  3. FISH OIL [Concomitant]
     Active Substance: FISH OIL
     Indication: PRODUCT USED FOR UNKNOWN INDICATION
  4. LOVASTATIN. [Concomitant]
     Active Substance: LOVASTATIN
     Indication: BLOOD CHOLESTEROL ABNORMAL
  5. DIPHENHYDRAMINE [Concomitant]
     Active Substance: DIPHENHYDRAMINE
     Indication: SLEEP DISORDER
     Dosage: AT NIGHT
  6. HUMIRA [Suspect]
     Active Substance: ADALIMUMAB
  7. FEXOFENADINE [Concomitant]
     Active Substance: FEXOFENADINE\FEXOFENADINE HYDROCHLORIDE
     Indication: HYPERSENSITIVITY
  8. HUMIRA [Suspect]
     Active Substance: ADALIMUMAB
     Dates: start: 20140331, end: 20140331
  9. HUMIRA [Suspect]
     Active Substance: ADALIMUMAB
     Dosage: IN ERROR
     Dates: start: 20140407, end: 20140407
  10. GARCINIA CAMBOGIA [Suspect]
     Active Substance: HYDROXYCITRIC ACID
     Indication: WEIGHT DECREASED
     Dates: start: 20140526
  11. VITAMIN B12 [Concomitant]
     Active Substance: CYANOCOBALAMIN
     Indication: PRODUCT USED FOR UNKNOWN INDICATION
  12. HUMIRA [Suspect]
     Active Substance: ADALIMUMAB
     Indication: PSORIASIS
     Dates: start: 20140324, end: 20140324

REACTIONS (12)
  - Injection site mass [Unknown]
  - Frequent bowel movements [Unknown]
  - Rash generalised [Recovered/Resolved]
  - Injection site pruritus [Not Recovered/Not Resolved]
  - Skin discolouration [Not Recovered/Not Resolved]
  - Skin exfoliation [Recovered/Resolved]
  - Injection site rash [Recovered/Resolved]
  - Pollakiuria [Unknown]
  - Depression [Recovered/Resolved]
  - Injection site pain [Unknown]
  - Injection site rash [Recovered/Resolved]
  - Anxiety [Recovered/Resolved]

NARRATIVE: CASE EVENT DATE: 2014
